FAERS Safety Report 6029939-0 (Version None)
Quarter: 2009Q1

REPORT INFORMATION
  Report Type: 
  Country: None (occurrence: None)
  Receive Date: 20090107
  Receipt Date: 20080826
  Transmission Date: 20090719
  Serious: Yes (Hospitalization, Other)
  Sender: FDA-Public Use
  Company Number: US-BRISTOL-MYERS SQUIBB COMPANY-14286660

PATIENT
  Age: 45 Year
  Sex: Male
  Weight: 71 kg

DRUGS (5)
  1. TRAZODONE HCL [Suspect]
     Indication: SOMNOLENCE
     Dosage: INITIATED ON MAY2008. 2ND DOSE ON 12JUN08
     Dates: start: 20080501, end: 20080601
  2. ZYPREXA [Concomitant]
  3. LITHIUM [Concomitant]
  4. VALIUM [Concomitant]
     Indication: SOMNOLENCE
  5. LISINOPRIL [Concomitant]

REACTIONS (5)
  - ASTHENIA [None]
  - DYSURIA [None]
  - ERECTILE DYSFUNCTION [None]
  - ERECTION INCREASED [None]
  - PIGMENTATION DISORDER [None]
